FAERS Safety Report 4873104-7 (Version None)
Quarter: 2005Q4

REPORT INFORMATION
  Report Type: 
  Country: None (occurrence: None)
  Receive Date: 20051201
  Receipt Date: 20050716
  Transmission Date: 20060501
  Serious: No
  Sender: FDA-Public Use
  Company Number: 2005PV000403

PATIENT
  Age: 67 Year
  Sex: Male
  Weight: 230 kg

DRUGS (17)
  1. BYETTA [Suspect]
     Indication: DIABETES MELLITUS NON-INSULIN-DEPENDENT
     Dosage: SEE IMAGEA
     Route: 058
     Dates: start: 20050716, end: 20050909
  2. BYETTA [Suspect]
     Indication: DIABETES MELLITUS NON-INSULIN-DEPENDENT
     Dosage: SEE IMAGEA
     Route: 058
     Dates: start: 20050910
  3. ACTOS ^LILLY^ [Concomitant]
  4. AMARYL [Concomitant]
  5. NORTRIPTYLINE HCL [Concomitant]
  6. PROTONIX [Concomitant]
  7. DIOVANE [Concomitant]
  8. ATENOLOL [Concomitant]
  9. NEURONTIN [Concomitant]
  10. NIACIN [Concomitant]
  11. LIPITOR [Concomitant]
  12. PLAVIX [Concomitant]
  13. ISOSORBIDE MONONITRATE [Concomitant]
  14. FUROSEMIDE [Concomitant]
  15. ASPIRIN [Concomitant]
  16. FISH OIL [Concomitant]
  17. VITAMIN B-12 [Concomitant]

REACTIONS (6)
  - BLOOD GLUCOSE DECREASED [None]
  - CHILLS [None]
  - DRUG INEFFECTIVE [None]
  - MUSCLE SPASMS [None]
  - NAUSEA [None]
  - TREMOR [None]
